FAERS Safety Report 13818756 (Version 1)
Quarter: 2017Q3

REPORT INFORMATION
  Report Type: Spontaneous
  Country: GB (occurrence: GB)
  Receive Date: 20170801
  Receipt Date: 20170801
  Transmission Date: 20171127
  Serious: Yes (Other)
  Sender: FDA-Public Use
  Company Number: GB-TEVA-789938ACC

PATIENT
  Age: 57 Year
  Sex: Female
  Weight: 57.15 kg

DRUGS (4)
  1. CLARITHROMYCIN. [Suspect]
     Active Substance: CLARITHROMYCIN
     Indication: INFECTED BITE
     Route: 048
     Dates: start: 20170701, end: 20170707
  2. NAPROXEN. [Concomitant]
     Active Substance: NAPROXEN
     Indication: SCIATICA
  3. RANITIDINE HYDROCHLORIDE. [Concomitant]
     Active Substance: RANITIDINE HYDROCHLORIDE
     Indication: SCIATICA
  4. ASPAR PHARMS PARACETAMOL [Concomitant]
     Indication: SCIATICA

REACTIONS (13)
  - Nausea [Recovered/Resolved]
  - Photopsia [Recovering/Resolving]
  - Constipation [Recovering/Resolving]
  - Eructation [Recovering/Resolving]
  - Decreased appetite [Recovering/Resolving]
  - Malaise [Recovering/Resolving]
  - Somnolence [Recovering/Resolving]
  - Dizziness postural [Recovering/Resolving]
  - Somnolence [Recovering/Resolving]
  - Headache [Recovering/Resolving]
  - Dysgeusia [Recovered/Resolved]
  - Flatulence [Recovering/Resolving]
  - Gastritis [Recovering/Resolving]

NARRATIVE: CASE EVENT DATE: 20170701
